FAERS Safety Report 6206319-6 (Version None)
Quarter: 2009Q2

REPORT INFORMATION
  Report Type: 
  Country: None (occurrence: None)
  Receive Date: 20090528
  Receipt Date: 20090520
  Transmission Date: 20091009
  Serious: Yes (Disabling)
  Sender: FDA-Public Use
  Company Number: UY-BAYER-200916789LA

PATIENT
  Age: 70 Year
  Sex: Male

DRUGS (1)
  1. NEXAVAR [Suspect]
     Indication: RENAL CANCER METASTATIC
     Dosage: UNIT DOSE: 200 MG
     Route: 048

REACTIONS (2)
  - DEAFNESS [None]
  - EAR DISCOMFORT [None]
